FAERS Safety Report 8770943 (Version 2)
Quarter: 2012Q4

REPORT INFORMATION
  Report Type: 
  Country: US (occurrence: US)
  Receive Date: 20120906
  Receipt Date: 20120911
  Transmission Date: 20130627
  Serious: Yes (Other)
  Sender: FDA-Public Use
  Company Number: US-PFIZER INC-2012212509

PATIENT
  Age: 57 Year
  Sex: Female
  Weight: 73 kg

DRUGS (15)
  1. PRISTIQ [Suspect]
     Indication: DEPRESSION
     Dosage: UNK
     Dates: start: 2011
  2. PRISTIQ [Suspect]
     Indication: ANXIETY
     Dosage: 50 mg, 1x/day
     Dates: start: 20120713, end: 20120716
  3. EFFEXOR [Suspect]
     Dosage: UNK
     Dates: end: 201101
  4. VIIBRYD [Suspect]
     Indication: ANXIETY
     Dosage: 10 mg, 1x/day
     Route: 048
     Dates: start: 20120508, end: 2012
  5. VIIBRYD [Suspect]
     Indication: DEPRESSION
     Dosage: 20 mg, 1x/day
     Route: 048
     Dates: start: 2012, end: 20120713
  6. CITALOPRAM [Suspect]
     Dosage: 20 mg, 1x/day
     Dates: start: 2009, end: 201205
  7. LEXAPRO [Suspect]
     Dosage: UNK
     Dates: start: 200212
  8. CELEXA [Concomitant]
     Dosage: UNK
     Dates: start: 2001, end: 200212
  9. WELLBUTRIN [Concomitant]
     Dosage: UNK
     Dates: start: 2001
  10. ABILIFY [Concomitant]
     Dosage: UNK
     Dates: start: 2011, end: 2012
  11. LEVOTHYROXINE SODIUM [Concomitant]
     Dosage: 75 ug, 1x/day
  12. GLUCOSAMINE [Concomitant]
     Dosage: UNK
  13. CHONDROITIN [Concomitant]
     Dosage: UNK
  14. FISH OIL [Concomitant]
     Indication: BLOOD CHOLESTEROL INCREASED
     Dosage: UNK
  15. BABY ASPIRIN [Concomitant]
     Indication: PAIN
     Dosage: UNK, as needed

REACTIONS (14)
  - Panic disorder [Unknown]
  - Palpitations [Unknown]
  - Nervousness [Unknown]
  - Weight increased [Unknown]
  - Weight decreased [Unknown]
  - Hyperhidrosis [Unknown]
  - Abnormal dreams [Recovered/Resolved]
  - Insomnia [Unknown]
  - Nausea [Unknown]
  - Asthenia [Unknown]
  - Diarrhoea [Unknown]
  - Parosmia [Unknown]
  - Retching [Unknown]
  - Drug ineffective [Not Recovered/Not Resolved]
